FAERS Safety Report 14495913 (Version 1)
Quarter: 2018Q1

REPORT INFORMATION
  Report Type: Report from Study
  Country: UA (occurrence: UA)
  Receive Date: 20180207
  Receipt Date: 20180207
  Transmission Date: 20180509
  Serious: Yes (Other)
  Sender: FDA-Public Use
  Company Number: UA-ROCHE-2063043

PATIENT

DRUGS (5)
  1. RIBAVIRIN. [Suspect]
     Active Substance: RIBAVIRIN
     Indication: CHRONIC HEPATITIS C
     Dosage: DIVIDED INTO TWO INTAKES DURING BREAKFAST AND DINNER (DURING 48 WEEKS)
     Route: 065
  2. PEG-INTERFERON ALFA 2A [Suspect]
     Active Substance: PEGINTERFERON ALFA-2A
     Indication: CHRONIC HEPATITIS C
     Route: 058
  3. URSODEOXYCHOLIC ACID [Suspect]
     Active Substance: URSODIOL
     Indication: CHRONIC HEPATITIS C
     Route: 065
  4. ADEMETIONINE [Suspect]
     Active Substance: ADEMETIONINE
     Indication: CHRONIC HEPATITIS C
     Dosage: 10 DAYS
     Route: 042
  5. ADEMETIONINE [Suspect]
     Active Substance: ADEMETIONINE
     Route: 048

REACTIONS (5)
  - Leukopenia [Unknown]
  - Neutropenia [Unknown]
  - Anaemia [Unknown]
  - Pyelonephritis chronic [Unknown]
  - Diabetic foot [Unknown]
